FAERS Safety Report 12746901 (Version 1)
Quarter: 2016Q3

REPORT INFORMATION
  Report Type: Spontaneous
  Country: US (occurrence: US)
  Receive Date: 20160915
  Receipt Date: 20160915
  Transmission Date: 20161109
  Serious: Yes (Other)
  Sender: FDA-Public Use
  Company Number: US-ASTELLAS-2015US033816

PATIENT
  Age: 91 Year
  Sex: Male

DRUGS (4)
  1. XTANDI [Suspect]
     Active Substance: ENZALUTAMIDE
     Route: 065
  2. XTANDI [Suspect]
     Active Substance: ENZALUTAMIDE
     Route: 048
     Dates: start: 20150911
  3. XTANDI [Suspect]
     Active Substance: ENZALUTAMIDE
     Indication: PROSTATE CANCER
     Route: 065
  4. XTANDI [Suspect]
     Active Substance: ENZALUTAMIDE
     Route: 065

REACTIONS (8)
  - Back pain [Unknown]
  - Depression [Recovering/Resolving]
  - Asthenia [Not Recovered/Not Resolved]
  - Malignant neoplasm progression [Unknown]
  - Constipation [Recovered/Resolved]
  - Underdose [Unknown]
  - Constipation [Unknown]
  - Fatigue [Not Recovered/Not Resolved]

NARRATIVE: CASE EVENT DATE: 201509
